FAERS Safety Report 7193629-1 (Version None)
Quarter: 2010Q4

REPORT INFORMATION
  Report Type: 
  Country: None (occurrence: None)
  Receive Date: 20101223
  Receipt Date: 20101221
  Transmission Date: 20110411
  Serious: Yes (Death, Hospitalization)
  Sender: FDA-Public Use
  Company Number: JP-NOVOPROD-318697

PATIENT
  Age: 51 Year
  Sex: Male
  Weight: 130 kg

DRUGS (12)
  1. VICTOZA [Suspect]
     Indication: TYPE 2 DIABETES MELLITUS
     Dosage: 0.3 MG, QD
     Route: 058
     Dates: start: 20100713
  2. VICTOZA [Suspect]
     Dosage: 0.6 MG, QD
     Route: 058
     Dates: start: 20100720
  3. VICTOZA [Suspect]
     Dosage: 0.9 MG, QD
     Route: 058
     Dates: start: 20100727, end: 20101103
  4. CONIEL [Concomitant]
     Dosage: UNK
     Route: 048
     Dates: end: 20101108
  5. BLOPRESS [Concomitant]
     Dosage: UNK
     Route: 048
     Dates: end: 20101123
  6. TANATRIL [Concomitant]
     Dosage: 5 MG, QD
     Route: 048
     Dates: end: 20101123
  7. CRESTOR [Concomitant]
     Dosage: UNK
     Route: 048
     Dates: end: 20101123
  8. AMARYL [Concomitant]
     Dosage: 1 MG, QD
     Route: 048
     Dates: start: 20100813
  9. AMARYL [Concomitant]
     Dosage: 3 MG, QD
     Route: 048
     Dates: start: 20100909
  10. ACTOS [Concomitant]
     Dosage: 30 MG, QD
     Route: 048
     Dates: start: 20101104, end: 20101108
  11. METGLUCO [Concomitant]
     Dosage: 250 MG, QD
     Route: 048
     Dates: start: 20101104, end: 20101108
  12. SEIBULE [Concomitant]
     Dosage: 75 MG, QD
     Route: 048
     Dates: start: 20101104, end: 20101108

REACTIONS (1)
  - PANCREATIC CARCINOMA [None]
